FAERS Safety Report 16327656 (Version 1)
Quarter: 2019Q2

REPORT INFORMATION
  Report Type: Spontaneous
  Country: US (occurrence: US)
  Receive Date: 20190517
  Receipt Date: 20190517
  Transmission Date: 20190711
  Serious: No
  Sender: FDA-Public Use
  Company Number: US-009507513-1905USA007373

PATIENT
  Age: 87 Year
  Sex: Female

DRUGS (2)
  1. ZOCOR [Suspect]
     Active Substance: SIMVASTATIN
     Indication: BLOOD CHOLESTEROL ABNORMAL
     Route: 048
  2. EYLEA [Suspect]
     Active Substance: AFLIBERCEPT

REACTIONS (4)
  - Abdominal pain [Unknown]
  - Hernia [Unknown]
  - Hypotonia [Unknown]
  - Dysuria [Unknown]

NARRATIVE: CASE EVENT DATE: 201809
